FAERS Safety Report 25760266 (Version 1)
Quarter: 2025Q3

REPORT INFORMATION
  Report Type: Spontaneous
  Country: US (occurrence: None)
  Receive Date: 20250903
  Receipt Date: 20250903
  Transmission Date: 20251020
  Serious: Yes (Other)
  Sender: FDA-CTU
  Company Number: None

PATIENT
  Age: 67 Year
  Sex: Female

DRUGS (1)
  1. KISQALI [Suspect]
     Active Substance: RIBOCICLIB SUCCINATE
     Indication: Breast cancer female

REACTIONS (8)
  - Back pain [None]
  - Neck pain [None]
  - Muscle strain [None]
  - Fall [None]
  - Foot fracture [None]
  - Asthenia [None]
  - Pain [None]
  - Dyspnoea [None]
